FAERS Safety Report 9612173 (Version 3)
Quarter: 2014Q1

REPORT INFORMATION
  Report Type: Report from Study
  Country: TH (occurrence: TH)
  Receive Date: 20131010
  Receipt Date: 20140331
  Transmission Date: 20141002
  Serious: Yes (Death, Life-Threatening, Hospitalization)
  Sender: FDA-Public Use
  Company Number: TH-SA-2013SA099554

PATIENT
  Age: 52 Year
  Sex: Female

DRUGS (15)
  1. AFLIBERCEPT [Suspect]
     Indication: COLORECTAL CANCER METASTATIC
     Route: 041
     Dates: start: 20130813, end: 20130813
  2. AFLIBERCEPT [Suspect]
     Indication: COLORECTAL CANCER METASTATIC
     Route: 041
     Dates: start: 20130918, end: 20130918
  3. FLUOROURACIL [Suspect]
     Indication: COLORECTAL CANCER METASTATIC
     Route: 041
     Dates: start: 20130813, end: 20130813
  4. FLUOROURACIL [Suspect]
     Indication: COLORECTAL CANCER METASTATIC
     Route: 040
     Dates: start: 20130813, end: 20130813
  5. FLUOROURACIL [Suspect]
     Indication: COLORECTAL CANCER METASTATIC
     Route: 040
     Dates: start: 20130918, end: 20130918
  6. FLUOROURACIL [Suspect]
     Indication: COLORECTAL CANCER METASTATIC
     Route: 041
     Dates: start: 20130918, end: 20130918
  7. IRINOTECAN [Suspect]
     Indication: COLORECTAL CANCER METASTATIC
     Route: 041
     Dates: start: 20130813, end: 20130813
  8. IRINOTECAN [Suspect]
     Indication: COLORECTAL CANCER METASTATIC
     Route: 041
     Dates: start: 20130918, end: 20130918
  9. LEUCOVORIN [Suspect]
     Indication: COLORECTAL CANCER METASTATIC
     Route: 041
     Dates: start: 20130813, end: 20130813
  10. LEUCOVORIN [Suspect]
     Indication: COLORECTAL CANCER METASTATIC
     Route: 041
     Dates: start: 20130918, end: 20130918
  11. ACE INHIBITORS AND DIURETICS [Concomitant]
     Indication: HYPERTENSION
     Dates: start: 201004
  12. CORTICOSTEROIDS [Concomitant]
     Indication: PROPHYLAXIS
     Dates: start: 20130813
  13. SEROTONIN ANTAGONISTS [Concomitant]
     Indication: PROPHYLAXIS
     Dates: start: 20130813
  14. ANTICHOLINERGICS [Concomitant]
     Indication: PROPHYLAXIS
     Dates: start: 20130813
  15. LOPERAMIDE [Concomitant]
     Dates: start: 20130815

REACTIONS (1)
  - Septic shock [Fatal]
